FAERS Safety Report 6738964-3 (Version None)
Quarter: 2010Q2

REPORT INFORMATION
  Report Type: 
  Country: None (occurrence: None)
  Receive Date: 20100521
  Receipt Date: 20100517
  Transmission Date: 20101027
  Serious: Yes (Hospitalization)
  Sender: FDA-Public Use
  Company Number: 20100011USST

PATIENT
  Age: 37 Year
  Sex: Male

DRUGS (7)
  1. PROCARBAZINE CAPSULES [Suspect]
     Indication: ASTROCYTOMA
  2. LOMUSTINE [Suspect]
     Indication: ASTROCYTOMA
  3. VINCRISTINE [Suspect]
     Indication: ASTROCYTOMA
  4. DEXAMETHASONE [Concomitant]
  5. LEVETIRACETAM [Concomitant]
  6. VALPROIC ACID [Concomitant]
  7. CLOBAZAM [Concomitant]

REACTIONS (10)
  - CHILLS [None]
  - DERMATITIS BULLOUS [None]
  - ECTHYMA [None]
  - FEBRILE NEUTROPENIA [None]
  - HAEMOGLOBIN DECREASED [None]
  - INAPPROPRIATE ANTIDIURETIC HORMONE SECRETION [None]
  - NECROSIS [None]
  - NEUTROPHIL COUNT DECREASED [None]
  - PLATELET COUNT DECREASED [None]
  - PSEUDOMONAS INFECTION [None]
